FAERS Safety Report 9927502 (Version 1)
Quarter: 2014Q1

REPORT INFORMATION
  Report Type: Spontaneous
  Country: DE (occurrence: DE)
  Receive Date: 20140227
  Receipt Date: 20140227
  Transmission Date: 20141002
  Serious: Yes (Hospitalization)
  Sender: FDA-Public Use
  Company Number: DE-ROCHE-1356148

PATIENT
  Sex: Male

DRUGS (13)
  1. LUCENTIS [Suspect]
     Indication: AGE-RELATED MACULAR DEGENERATION
     Route: 050
     Dates: start: 20120705
  2. LUCENTIS [Suspect]
     Route: 050
     Dates: start: 20130627
  3. ASS-100 [Concomitant]
     Indication: PROPHYLAXIS
     Route: 048
     Dates: start: 2004
  4. SIMVASTATIN [Concomitant]
     Indication: HYPERLIPIDAEMIA
     Route: 065
     Dates: start: 2007
  5. LOSARTAN [Concomitant]
     Indication: HYPERTENSION
     Route: 048
     Dates: start: 2009
  6. LUTEIN [Concomitant]
     Route: 065
     Dates: start: 201206
  7. ASCORBIC ACID [Concomitant]
     Route: 065
     Dates: start: 201206
  8. COPPER [Concomitant]
     Route: 065
     Dates: start: 201206
  9. NICOTINAMIDE [Concomitant]
     Route: 065
     Dates: start: 201206
  10. SELENIUM [Concomitant]
     Route: 065
     Dates: start: 201206
  11. TOCOPHEROL [Concomitant]
     Route: 065
     Dates: start: 201206
  12. XANTOFYL [Concomitant]
     Route: 065
     Dates: start: 201206
  13. ZINC [Concomitant]
     Route: 065
     Dates: start: 201206

REACTIONS (1)
  - Nephrolithiasis [Recovering/Resolving]
